FAERS Safety Report 24173433 (Version 1)
Quarter: 2024Q3

REPORT INFORMATION
  Report Type: Other
  Country: CA (occurrence: CA)
  Receive Date: 20240805
  Receipt Date: 20240805
  Transmission Date: 20241017
  Serious: Yes (Disabling)
  Sender: DEXCEL
  Company Number: CA-DEXPHARM-2024-2606

PATIENT
  Age: 76 Year
  Sex: Female

DRUGS (3)
  1. VENLAFAXINE [Interacting]
     Active Substance: VENLAFAXINE HYDROCHLORIDE
     Indication: Depression
     Dosage: 400 MG DAILY.?THE DOSE WAS REDUCED GRADUALLY TO 300 MG DAILY.
  2. DOXEPIN [Interacting]
     Active Substance: DOXEPIN
     Indication: Depression
     Dosage: 250 MG DAILY?THE DOSE WAS REDUCED GRADUALLY TO 150 MG DAILY AND THEN MEDICATION WAS WITHDRAWN.
  3. FUROSEMIDE [Concomitant]
     Active Substance: FUROSEMIDE
     Indication: Urinary retention
     Dosage: 20 MG DAILY 3 TIMES WEEKLY. DOSE REDUCED TO 10 MG 3 TIMES WEEKLY AND INCREASED BACK TO 20 MG 3 TI...

REACTIONS (2)
  - Cognitive disorder [Recovered/Resolved with Sequelae]
  - Drug interaction [Recovered/Resolved with Sequelae]
